FAERS Safety Report 21231821 (Version 1)
Quarter: 2022Q3

REPORT INFORMATION
  Report Type: Spontaneous
  Country: NL (occurrence: NL)
  Receive Date: 20220819
  Receipt Date: 20220819
  Transmission Date: 20221027
  Serious: Yes (Hospitalization)
  Sender: FDA-Public Use
  Company Number: None

PATIENT
  Age: 75 Year
  Sex: Female
  Weight: 68 kg

DRUGS (2)
  1. HYDROCHLOROTHIAZIDE [Suspect]
     Active Substance: HYDROCHLOROTHIAZIDE
     Indication: Hypertension
     Dosage: 1 X ,FORM STRENGTH: 12.5MG / BRAND NAME NOT SPECIFIED , UNIT DOSE : 1 DF , DURATION : 15 YEARS
     Dates: start: 2007, end: 20220719
  2. CARDURA XL [Concomitant]
     Active Substance: DOXAZOSIN MESYLATE
     Indication: Product used for unknown indication
     Dosage: MODIFIED-RELEASE TABLET,FORM STRENGTH :  8 MG (MILLIGRAMS), DOXAZOSIN TABLET MGA 8MG / CARDURA XL TA

REACTIONS (4)
  - Pancreatitis [Not Recovered/Not Resolved]
  - Hyponatraemia [Not Recovered/Not Resolved]
  - Hypokalaemia [Not Recovered/Not Resolved]
  - Skin cancer [Not Recovered/Not Resolved]

NARRATIVE: CASE EVENT DATE: 20220719
